FAERS Safety Report 8135549-1 (Version None)
Quarter: 2012Q1

REPORT INFORMATION
  Report Type: 
  Country: None (occurrence: None)
  Receive Date: 20120210
  Receipt Date: 20120112
  Transmission Date: 20120608
  Serious: No
  Sender: FDA-Public Use
  Company Number: TCI2011A06876

PATIENT
  Age: 83 Year
  Sex: Female

DRUGS (6)
  1. CLARITHROMYCIN [Suspect]
     Indication: HELICOBACTER INFECTION
     Dosage: 400 G (200 MG, 2 IN 1 D)
     Route: 048
     Dates: start: 20111219
  2. SIMVASTATIN [Concomitant]
  3. LANSOPRAZOLE [Suspect]
     Indication: HELICOBACTER INFECTION
     Dosage: 60 MG (30 MG, 2 IN 1 D)
     Route: 048
     Dates: start: 20111219
  4. PREMINENT (HYDROCHLOROTHIAZIDE, LOSARTAN POTASSIUM) [Concomitant]
  5. AMOXICILLIN TRIHYDRATE [Suspect]
     Indication: HELICOBACTER INFECTION
     Dosage: 1500 MG (750 MG, 2 IN 1 D)
     Route: 048
     Dates: start: 20111219
  6. CONIEL (BENIDIPINE HYDROCHLORIDE) [Concomitant]

REACTIONS (2)
  - VISUAL ACUITY REDUCED [None]
  - VISION BLURRED [None]
